FAERS Safety Report 24970454 (Version 1)
Quarter: 2025Q1

REPORT INFORMATION
  Report Type: Report from Study
  Country: US (occurrence: US)
  Receive Date: 20250214
  Receipt Date: 20250214
  Transmission Date: 20250409
  Serious: Yes (Hospitalization)
  Sender: BAUSCH AND LOMB
  Company Number: US-BAUSCH-BL-2025-001947

PATIENT
  Age: 69 Year
  Sex: Male
  Weight: 93.978 kg

DRUGS (8)
  1. XIFAXAN [Suspect]
     Active Substance: RIFAXIMIN
     Indication: Hepatic encephalopathy
     Dosage: 1 TABLET BY MOUTH BID
     Route: 048
  2. LACTULOSE [Suspect]
     Active Substance: LACTULOSE
     Indication: Hepatic encephalopathy
     Dosage: 10 GRAM/15 ML 1 TWICE A DAY BY MOUTH TWICE A DAY FOR 90 DAY BID
     Route: 048
  3. TIZANIDINE [Concomitant]
     Active Substance: TIZANIDINE
     Indication: Product used for unknown indication
     Route: 065
  4. DILTIAZEM HYDROCHLORIDE [Concomitant]
     Active Substance: DILTIAZEM HYDROCHLORIDE
     Indication: Product used for unknown indication
     Route: 065
  5. FAMOTIDINE [Concomitant]
     Active Substance: FAMOTIDINE
     Indication: Product used for unknown indication
     Route: 048
  6. FUROSEMIDE [Concomitant]
     Active Substance: FUROSEMIDE
     Indication: Product used for unknown indication
     Route: 048
  7. LEVOTHYROXINE [Concomitant]
     Active Substance: LEVOTHYROXINE
     Indication: Product used for unknown indication
     Route: 065
  8. SPIRONOLACTONE [Concomitant]
     Active Substance: SPIRONOLACTONE
     Indication: Product used for unknown indication
     Route: 065

REACTIONS (5)
  - Fall [Unknown]
  - Joint swelling [Unknown]
  - Muscular weakness [Unknown]
  - Musculoskeletal stiffness [Unknown]
  - Product distribution issue [Unknown]
